FAERS Safety Report 21051066 (Version 1)
Quarter: 2022Q3

REPORT INFORMATION
  Report Type: Spontaneous
  Country: US (occurrence: US)
  Receive Date: 20220707
  Receipt Date: 20220707
  Transmission Date: 20221027
  Serious: Yes (Hospitalization)
  Sender: FDA-Public Use
  Company Number: US-BIOVITRUM-2022US08358

PATIENT
  Sex: Female

DRUGS (1)
  1. KINERET [Suspect]
     Active Substance: ANAKINRA
     Indication: Rheumatoid arthritis
     Dates: start: 202112

REACTIONS (13)
  - Head injury [Unknown]
  - Adverse drug reaction [Unknown]
  - Cardiac disorder [Unknown]
  - Illness [Unknown]
  - Alopecia [Unknown]
  - Weight decreased [Unknown]
  - Nausea [Unknown]
  - Fatigue [Unknown]
  - Ventricular extrasystoles [Unknown]
  - Gastric pH decreased [Unknown]
  - Rheumatoid factor increased [Unknown]
  - Loss of personal independence in daily activities [Unknown]
  - Product dose omission issue [Unknown]
